FAERS Safety Report 16189941 (Version 6)
Quarter: 2019Q3

REPORT INFORMATION
  Report Type: Spontaneous
  Country: US (occurrence: US)
  Receive Date: 20190412
  Receipt Date: 20190816
  Transmission Date: 20191004
  Serious: No
  Sender: FDA-Public Use
  Company Number: US-PFIZER INC-2019155523

PATIENT
  Age: 36 Year
  Sex: Female
  Weight: 72.5 kg

DRUGS (3)
  1. LYRICA [Suspect]
     Active Substance: PREGABALIN
     Indication: NEURALGIA
     Dosage: 300 MG, 3X/DAY (FOR 30 DAYS)
     Route: 048
     Dates: start: 201706, end: 2017
  2. KLONOPIN [Concomitant]
     Active Substance: CLONAZEPAM
     Indication: ANXIETY
     Dosage: UNK UNK, AS NEEDED
  3. LYRICA [Suspect]
     Active Substance: PREGABALIN
     Dosage: 300 MG, AS NEEDED [1 CAPSULE PRN (AS NEEDED) 3 TIMES A DAY FOR 30 DAYS]
     Route: 048
     Dates: start: 201707

REACTIONS (5)
  - Off label use [Unknown]
  - Product use issue [Unknown]
  - Nasal congestion [Unknown]
  - Nausea [Unknown]
  - Prescribed overdose [Unknown]

NARRATIVE: CASE EVENT DATE: 201706
